FAERS Safety Report 17640525 (Version 3)
Quarter: 2020Q3

REPORT INFORMATION
  Report Type: Spontaneous
  Country: DE (occurrence: DE)
  Receive Date: 20200408
  Receipt Date: 20200918
  Transmission Date: 20201102
  Serious: Yes (Hospitalization, Other)
  Sender: FDA-Public Use
  Company Number: DE-AUROBINDO-AUR-APL-2020-016665

PATIENT
  Sex: Female

DRUGS (7)
  1. KISQALI [Suspect]
     Active Substance: RIBOCICLIB
     Indication: BREAST CANCER METASTATIC
     Dosage: 600 MILLIGRAM, SCHEMA 21 DAYS INTAKE THAN 7 DAYS PAUSE
     Route: 048
     Dates: start: 20180801, end: 20190817
  2. KISQALI [Suspect]
     Active Substance: RIBOCICLIB
     Dosage: 400 MILLIGRAM, ONCE A DAY, SCHEMA 21 DAYS INTAKE THAN 7 DAYS PAUSE
     Route: 048
     Dates: start: 20191219, end: 20200815
  3. LETROZOLE. [Suspect]
     Active Substance: LETROZOLE
     Indication: BREAST CANCER METASTATIC
     Dosage: 2.5 MILLIGRAM, ONCE A DAY
     Route: 048
     Dates: start: 20190708
  4. KISQALI [Suspect]
     Active Substance: RIBOCICLIB
     Dosage: 400 MILLIGRAM, ONCE A DAY, SCHEMA 21 DAYS INTAKE THAN 7 DAYS PAUSE
     Route: 048
     Dates: start: 20191025, end: 20191118
  5. KISQALI [Suspect]
     Active Substance: RIBOCICLIB
     Dosage: 200 MILLIGRAM
     Route: 048
     Dates: start: 20200816
  6. KISQALI [Suspect]
     Active Substance: RIBOCICLIB
     Dosage: 400 MILLIGRAM, ONCE A DAY, SCHEMA 21 DAYS INTAKE THAN 7 DAYS PAUSE
     Route: 048
     Dates: start: 20191016, end: 20191020
  7. KISQALI [Suspect]
     Active Substance: RIBOCICLIB
     Dosage: 400 MILLIGRAM, SCHEMA 21 DAYS INTAKE THAN 7 DAYS PAUSE
     Route: 048
     Dates: start: 20180818, end: 20191014

REACTIONS (6)
  - Duodenal ulcer [Recovered/Resolved]
  - Nausea [Recovered/Resolved]
  - Abdominal pain upper [Not Recovered/Not Resolved]
  - Helicobacter infection [Recovered/Resolved]
  - Stenosis [Recovering/Resolving]
  - Vomiting [Recovered/Resolved]

NARRATIVE: CASE EVENT DATE: 20180708
